FAERS Safety Report 8816318 (Version 1)
Quarter: 2012Q4

REPORT INFORMATION
  Report Type: 
  Country: US (occurrence: None)
  Receive Date: 20120928
  Receipt Date: 20120928
  Transmission Date: 20130627
  Serious: Yes (Hospitalization)
  Sender: FDA-Public Use
  Company Number: None

PATIENT
  Sex: Female
  Weight: 85 kg

DRUGS (3)
  1. IFOSFAMIDE [Suspect]
  2. PACLITAXEL (TAXOL) [Suspect]
  3. PEGFILGRASTIM [Suspect]

REACTIONS (7)
  - Febrile neutropenia [None]
  - Hypokalaemia [None]
  - Anaemia [None]
  - Renal failure acute [None]
  - Platelet count decreased [None]
  - Neutropenic sepsis [None]
  - Neuropathy peripheral [None]
